FAERS Safety Report 5000777-0 (Version None)
Quarter: 2006Q2

REPORT INFORMATION
  Report Type: 
  Country: None (occurrence: None)
  Receive Date: 20060512
  Receipt Date: 20051017
  Transmission Date: 20061013
  Serious: Yes (Hospitalization, Disabling)
  Sender: FDA-Public Use
  Company Number: US-MERCK-0510USA07509

PATIENT
  Age: 66 Year
  Sex: Female

DRUGS (2)
  1. VIOXX [Suspect]
     Indication: PAIN
     Route: 048
     Dates: start: 20000107, end: 20031201
  2. VIOXX [Suspect]
     Route: 048
     Dates: start: 20000107, end: 20031201

REACTIONS (7)
  - CEREBRAL ARTERIOSCLEROSIS [None]
  - CEREBROVASCULAR ACCIDENT [None]
  - CONGESTIVE CARDIOMYOPATHY [None]
  - ECCHYMOSIS [None]
  - EMOTIONAL DISTRESS [None]
  - EXCORIATION [None]
  - VASCULAR DEMENTIA [None]
